FAERS Safety Report 10524945 (Version 1)
Quarter: 2014Q4

REPORT INFORMATION
  Report Type: Spontaneous
  Country: US (occurrence: None)
  Receive Date: 20141015
  Receipt Date: 20141015
  Transmission Date: 20150528
  Serious: No
  Sender: FDA-Public Use
  Company Number: None

PATIENT
  Age: 23 Year
  Sex: Female
  Weight: 62 kg

DRUGS (1)
  1. SAPHRIS [Suspect]
     Active Substance: ASENAPINE MALEATE
     Indication: BIPOLAR II DISORDER
     Dosage: 2  ONCE DAILY TAKEN UNDER THE TONGUE
     Route: 060
     Dates: start: 20120620, end: 20140813

REACTIONS (3)
  - Activities of daily living impaired [None]
  - Anxiety [None]
  - Movement disorder [None]

NARRATIVE: CASE EVENT DATE: 20140523
